FAERS Safety Report 22026763 (Version 1)
Quarter: 2023Q1

REPORT INFORMATION
  Report Type: Report from Study
  Country: EG (occurrence: EG)
  Receive Date: 20230223
  Receipt Date: 20230223
  Transmission Date: 20230418
  Serious: Yes (Other)
  Sender: FDA-Public Use
  Company Number: EG-002147023-NVSC2023EG038615

PATIENT
  Age: 61 Year
  Sex: Female

DRUGS (7)
  1. COSENTYX [Suspect]
     Active Substance: SECUKINUMAB
     Indication: Ankylosing spondylitis
     Dosage: 1 DOSAGE FORM, QMO
     Route: 065
     Dates: start: 20230103
  2. LEFLUNOMIDE [Suspect]
     Active Substance: LEFLUNOMIDE
     Indication: Hypovitaminosis
     Dosage: UNK
     Route: 065
     Dates: end: 202301
  3. SULPIRIDE [Concomitant]
     Active Substance: SULPIRIDE
     Indication: Product used for unknown indication
     Dosage: 0.5 DOSAGE FORM (AFTER BREAKFAST)
     Route: 065
     Dates: start: 20221129
  4. MULTIRELAX [Concomitant]
     Indication: Product used for unknown indication
     Dosage: 1 DOSAGE FORM (AT NIGHT)
     Route: 065
     Dates: start: 20221129
  5. ARCOXIA [Concomitant]
     Active Substance: ETORICOXIB
     Indication: Analgesic therapy
     Dosage: 1 DOSAGE FORM
     Route: 065
     Dates: start: 20221129
  6. LUSTRAL [Concomitant]
     Active Substance: SERTRALINE HYDROCHLORIDE
     Indication: Product used for unknown indication
     Dosage: 1 DOSAGE FORM (AT NIGHT AND HER HCP SHIFTED IT TO BE IN  MORNING_
     Route: 065
     Dates: start: 20221129
  7. MINERALS\VITAMINS [Concomitant]
     Active Substance: MINERALS\VITAMINS
     Indication: Hypovitaminosis
     Dosage: UNK
     Route: 065

REACTIONS (4)
  - Headache [Not Recovered/Not Resolved]
  - Bone pain [Not Recovered/Not Resolved]
  - Alopecia [Unknown]
  - Incorrect dose administered [Not Recovered/Not Resolved]

NARRATIVE: CASE EVENT DATE: 20230103
